FAERS Safety Report 8240493-5 (Version None)
Quarter: 2012Q1

REPORT INFORMATION
  Report Type: 
  Country: None (occurrence: None)
  Receive Date: 20120328
  Receipt Date: 20120323
  Transmission Date: 20120608
  Serious: No
  Sender: FDA-Public Use
  Company Number: US-PFIZER INC-2012076181

PATIENT
  Sex: Male
  Weight: 66.667 kg

DRUGS (5)
  1. LIPITOR [Suspect]
     Indication: BLOOD CHOLESTEROL INCREASED
     Dosage: 10 MG, 1X/DAY
     Route: 048
  2. ATORVASTATIN CALCIUM [Suspect]
     Indication: BLOOD CHOLESTEROL INCREASED
     Dosage: 10 MG, 1X/DAY
     Route: 048
     Dates: start: 20111212, end: 20120201
  3. SYNTHROID [Concomitant]
     Dosage: UNK, 1X/DAY
  4. METOPROLOL [Concomitant]
     Indication: HYPERTENSION
     Dosage: 50 MG, UNK
  5. ASPIRIN [Concomitant]
     Dosage: UNK, 2X/DAY

REACTIONS (4)
  - FEELING HOT [None]
  - MALAISE [None]
  - DIZZINESS [None]
  - FEELING ABNORMAL [None]
